FAERS Safety Report 22253694 (Version 2)
Quarter: 2023Q2

REPORT INFORMATION
  Report Type: Other
  Country: AU (occurrence: None)
  Receive Date: 20230426
  Receipt Date: 20230503
  Transmission Date: 20230722
  Serious: No
  Sender: FDA-Public Use
  Company Number: AU-ROCHE-2677487

PATIENT
  Age: 62 Year
  Sex: Female

DRUGS (1)
  1. OCREVUS [Suspect]
     Active Substance: OCRELIZUMAB
     Indication: Relapsing-remitting multiple sclerosis
     Route: 041
     Dates: start: 20181101

REACTIONS (6)
  - Fatigue [Not Recovered/Not Resolved]
  - Vertigo [Unknown]
  - Sensory disturbance [Unknown]
  - Poor quality sleep [Unknown]
  - COVID-19 [Recovering/Resolving]
  - Ligament sprain [Unknown]

NARRATIVE: CASE EVENT DATE: 20230417
